FAERS Safety Report 5879081-4 (Version None)
Quarter: 2008Q3

REPORT INFORMATION
  Report Type: 
  Country: None (occurrence: None)
  Receive Date: 20080912
  Receipt Date: 20080812
  Transmission Date: 20090109
  Serious: No
  Sender: FDA-Public Use
  Company Number: US-BAYER-200715913NA

PATIENT
  Age: 32 Year
  Sex: Female
  Weight: 118 kg

DRUGS (3)
  1. MIRENA [Suspect]
     Indication: CONTRACEPTION
     Route: 015
     Dates: start: 20071115
  2. IRON [Concomitant]
     Indication: DRUG USE FOR UNKNOWN INDICATION
  3. PRENATAL VITAMINS NOS [Concomitant]
     Indication: POSTPARTUM STATE

REACTIONS (10)
  - ANXIETY [None]
  - ARTHRALGIA [None]
  - DIZZINESS [None]
  - FATIGUE [None]
  - HEART RATE INCREASED [None]
  - MIGRAINE [None]
  - MOOD SWINGS [None]
  - NAUSEA [None]
  - NERVOUSNESS [None]
  - WEIGHT INCREASED [None]
